FAERS Safety Report 7150029-8 (Version None)
Quarter: 2010Q4

REPORT INFORMATION
  Report Type: 
  Country: None (occurrence: None)
  Receive Date: 20101210
  Receipt Date: 20101206
  Transmission Date: 20110411
  Serious: No
  Sender: FDA-Public Use
  Company Number: US-PFIZER INC-2010165347

PATIENT
  Sex: Male
  Weight: 79.4 kg

DRUGS (1)
  1. GABAPENTIN [Suspect]
     Indication: EPILEPSY
     Dosage: 1200 MG, 3X/DAY
     Route: 048
     Dates: start: 19980101

REACTIONS (1)
  - DRY MOUTH [None]
